FAERS Safety Report 11194627 (Version 1)
Quarter: 2015Q2

REPORT INFORMATION
  Report Type: Spontaneous
  Country: GB (occurrence: GB)
  Receive Date: 20150617
  Receipt Date: 20150617
  Transmission Date: 20150821
  Serious: Yes (Congenital Anomaly)
  Sender: FDA-Public Use
  Company Number: GB-AMGEN-GBRSP2015058583

PATIENT

DRUGS (2)
  1. LARIAM [Concomitant]
     Active Substance: MEFLOQUINE HYDROCHLORIDE
     Dosage: UNK
     Route: 064
  2. ENBREL [Suspect]
     Active Substance: ETANERCEPT
     Indication: MATERNAL EXPOSURE DURING PREGNANCY
     Dosage: UNK
     Route: 064

REACTIONS (5)
  - Maternal exposure during pregnancy [Unknown]
  - Pulmonary hypoplasia [Unknown]
  - Sirenomelia [Unknown]
  - Renal aplasia [Unknown]
  - Cardiomegaly [Unknown]
